FAERS Safety Report 7541654-0 (Version None)
Quarter: 2011Q2

REPORT INFORMATION
  Report Type: 
  Country: None (occurrence: None)
  Receive Date: 20110613
  Receipt Date: 20110606
  Transmission Date: 20111010
  Serious: Yes (Hospitalization)
  Sender: FDA-Public Use
  Company Number: TR-JNJFOC-20110512440

PATIENT
  Age: 62 Year
  Sex: Female

DRUGS (9)
  1. ACE INHIBITORS [Concomitant]
     Indication: HYPERTENSION
     Route: 065
  2. MORPHINE SULFATE [Suspect]
     Route: 048
  3. FENTANYL CITRATE [Suspect]
     Indication: BREAKTHROUGH PAIN
     Dosage: PASTILLE
     Route: 065
  4. PREGABALIN [Concomitant]
     Indication: NEUROPATHY PERIPHERAL
     Route: 065
  5. METOPROLOL [Concomitant]
     Indication: HYPERTENSION
     Route: 065
  6. FENTANYL [Suspect]
     Indication: PAIN
     Route: 062
  7. DICLOFENAC SODIUM [Concomitant]
     Indication: PAIN
  8. MORPHINE SULFATE [Suspect]
     Indication: ILL-DEFINED DISORDER
     Route: 048
  9. ACETAMINOPHEN [Concomitant]
     Route: 065

REACTIONS (3)
  - HYPERCALCAEMIA [None]
  - METASTASES TO LIVER [None]
  - RENAL FAILURE ACUTE [None]
